FAERS Safety Report 6263824-4 (Version None)
Quarter: 2009Q3

REPORT INFORMATION
  Report Type: 
  Country: None (occurrence: None)
  Receive Date: 20090707
  Receipt Date: 20090707
  Transmission Date: 20100115
  Serious: No
  Sender: FDA-Public Use
  Company Number: None

PATIENT
  Sex: Female

DRUGS (1)
  1. ZICAM [Suspect]
     Dosage: ONCE A DAY NASALLY
     Route: 045
     Dates: start: 20080501, end: 20080501

REACTIONS (3)
  - AGEUSIA [None]
  - ANOSMIA [None]
  - NERVOUS SYSTEM DISORDER [None]
